FAERS Safety Report 9369541 (Version 2)
Quarter: 2013Q3

REPORT INFORMATION
  Report Type: Spontaneous
  Country: US (occurrence: US)
  Receive Date: 20130626
  Receipt Date: 20130923
  Transmission Date: 20140515
  Serious: No
  Sender: FDA-Public Use
  Company Number: US-PFIZER INC-2013186574

PATIENT
  Age: 81 Year
  Sex: Male
  Weight: 86.17 kg

DRUGS (4)
  1. VIAGRA [Suspect]
     Indication: ERECTILE DYSFUNCTION
     Dosage: 100 MG, AS NEEDED
     Route: 048
  2. DIOVAN (VALSARTAN) [Concomitant]
     Dosage: UNK
  3. RAPAFLO [Concomitant]
     Dosage: UNK
  4. AVODART [Concomitant]
     Dosage: UNK

REACTIONS (4)
  - Product expiration date issue [Unknown]
  - Product lot number issue [Unknown]
  - Drug dispensing error [Unknown]
  - Drug ineffective [Unknown]
